FAERS Safety Report 26123759 (Version 1)
Quarter: 2025Q4

REPORT INFORMATION
  Report Type: Spontaneous
  Country: AU (occurrence: AU)
  Receive Date: 20251205
  Receipt Date: 20251205
  Transmission Date: 20260118
  Serious: Yes (Death, Life-Threatening)
  Sender: SETON PHARMACEUTICALS
  Company Number: AU-SETONPHARMA-2025SETLIT00016

PATIENT
  Age: 16 Year
  Sex: Male

DRUGS (6)
  1. PREDNISOLONE [Suspect]
     Active Substance: PREDNISOLONE
     Indication: Product used for unknown indication
  2. PREDNISOLONE [Suspect]
     Active Substance: PREDNISOLONE
  3. PREDNISOLONE [Suspect]
     Active Substance: PREDNISOLONE
  4. MYCOPHENOLATE MOFETIL [Concomitant]
     Active Substance: MYCOPHENOLATE MOFETIL
     Indication: Product used for unknown indication
  5. MYCOPHENOLATE MOFETIL [Concomitant]
     Active Substance: MYCOPHENOLATE MOFETIL
  6. RITUXIMAB [Concomitant]
     Active Substance: RITUXIMAB
     Dosage: 375 MG/M2

REACTIONS (4)
  - Self-injurious ideation [Fatal]
  - Anxiety [Unknown]
  - Decreased appetite [Unknown]
  - Insomnia [Unknown]
